FAERS Safety Report 4838489-6 (Version None)
Quarter: 2005Q4

REPORT INFORMATION
  Report Type: 
  Country: None (occurrence: None)
  Receive Date: 20051123
  Receipt Date: 20051123
  Transmission Date: 20060501
  Serious: No
  Sender: FDA-Public Use
  Company Number: None

PATIENT
  Age: 6 Year
  Sex: Male

DRUGS (6)
  1. BACLOFEN [Suspect]
     Dosage: IT 50 MCG INTRATHECALLY
     Route: 037
  2. PROPOFOL [Suspect]
  3. METOCLOPROMIDE [Concomitant]
  4. BACLOFEN [Concomitant]
  5. OMEPRAZOLE [Concomitant]
  6. PROPOFOL [Concomitant]

REACTIONS (2)
  - HYPOTENSION [None]
  - LOSS OF CONSCIOUSNESS [None]
